FAERS Safety Report 23828313 (Version 2)
Quarter: 2024Q2

REPORT INFORMATION
  Report Type: Spontaneous
  Country: GB (occurrence: GB)
  Receive Date: 20240508
  Receipt Date: 20240606
  Transmission Date: 20240716
  Serious: Yes (Other)
  Sender: FDA-Public Use
  Company Number: None

PATIENT
  Age: 43 Year
  Sex: Male
  Weight: 96 kg

DRUGS (3)
  1. ARIPIPRAZOLE [Suspect]
     Active Substance: ARIPIPRAZOLE
     Indication: Product used for unknown indication
     Dosage: 10 MILLIGRAM, QD, TABLET
     Route: 065
  2. Depixol [Concomitant]
     Indication: Product used for unknown indication
     Dosage: 160 MILLIGRAM, ONCE WEEKLY
     Route: 030
  3. Depixol [Concomitant]
     Dosage: 20 MILLIGRAM
     Route: 030
     Dates: start: 20240215

REACTIONS (2)
  - Psychotic symptom [Not Recovered/Not Resolved]
  - Treatment noncompliance [Unknown]
